FAERS Safety Report 10047457 (Version 2)
Quarter: 2014Q2

REPORT INFORMATION
  Report Type: Spontaneous
  Country: FR (occurrence: FR)
  Receive Date: 20140331
  Receipt Date: 20140424
  Transmission Date: 20141212
  Serious: Yes (Hospitalization)
  Sender: FDA-Public Use
  Company Number: FR-ASTELLAS-2014EU002818

PATIENT
  Age: 86 Year
  Sex: Female
  Weight: 53 kg

DRUGS (9)
  1. VESICARE [Suspect]
     Indication: HYPERTONIC BLADDER
     Route: 048
     Dates: start: 20130916, end: 201401
  2. VESICARE [Suspect]
     Indication: MICTURITION URGENCY
  3. ZANEXTRA [Concomitant]
     Indication: HYPERTENSION
     Route: 048
     Dates: end: 201402
  4. KARDEGIC [Concomitant]
     Indication: ANTIPLATELET THERAPY
     Route: 048
  5. LIPANOR [Concomitant]
     Indication: HYPERTRIGLYCERIDAEMIA
     Route: 048
     Dates: end: 201402
  6. DEROXAT [Concomitant]
     Indication: DEPRESSION
     Route: 048
  7. XANAX [Concomitant]
     Indication: ANXIETY
     Route: 048
     Dates: end: 201402
  8. STILNOX [Concomitant]
     Indication: INSOMNIA
     Route: 048
     Dates: end: 201402
  9. XYZALL [Concomitant]
     Indication: HYPERSENSITIVITY
     Route: 048
     Dates: end: 201402

REACTIONS (1)
  - Orthostatic hypotension [Recovered/Resolved]
